FAERS Safety Report 10009651 (Version 2)
Quarter: 2014Q1

REPORT INFORMATION
  Report Type: Spontaneous
  Country: US (occurrence: US)
  Receive Date: 20140312
  Receipt Date: 20140312
  Transmission Date: 20141002
  Serious: No
  Sender: FDA-Public Use
  Company Number: US-INCYTE CORPORATION-2012IN001675

PATIENT
  Sex: Female
  Weight: 61.22 kg

DRUGS (9)
  1. JAKAFI [Suspect]
     Indication: MYELOFIBROSIS
     Dosage: 15 MG, BID
     Route: 048
     Dates: start: 20120407, end: 2012
  2. JAKAFI [Suspect]
     Dosage: NOT SPECIFIED
     Route: 048
     Dates: start: 2012
  3. JAKAFI [Suspect]
     Dosage: 20 MG, BID
  4. JAKAFI [Suspect]
     Dosage: 15 MG, BID
     Dates: start: 20120822
  5. EFFEXOR [Suspect]
     Indication: DEPRESSION
     Dosage: UNK
     Dates: start: 20120805
  6. PAXIL [Concomitant]
     Dosage: UNK
     Dates: start: 2002
  7. CELEXA [Concomitant]
     Indication: DEPRESSION
     Dosage: 40 MG, UNK
     Dates: start: 2007
  8. CELEXA [Concomitant]
     Dosage: 20 MG, UNK
     Dates: start: 20120805
  9. CELEXA [Concomitant]
     Dosage: 40 MG, UNK
     Dates: start: 20120831

REACTIONS (7)
  - Arthralgia [Recovered/Resolved]
  - Depression [Recovered/Resolved]
  - Drug dose omission [Recovered/Resolved]
  - Bone pain [Recovered/Resolved]
  - Arthritis [Unknown]
  - Mood swings [Unknown]
  - Confusional state [Unknown]
